FAERS Safety Report 5223622-7 (Version None)
Quarter: 2007Q1

REPORT INFORMATION
  Report Type: 
  Country: None (occurrence: None)
  Receive Date: 20070130
  Receipt Date: 20070118
  Transmission Date: 20070707
  Serious: Yes (Other)
  Sender: FDA-Public Use
  Company Number: PHBS2006JP17228

PATIENT
  Age: 53 Year
  Sex: Female
  Weight: 60 kg

DRUGS (7)
  1. AREDIA [Suspect]
     Indication: METASTASES TO BONE
     Dosage: 90 MG, UNK
     Route: 042
     Dates: start: 20050325, end: 20060410
  2. TAXOL [Concomitant]
     Dosage: 90 MG/D
     Route: 042
     Dates: start: 20050322
  3. ARIMIDEX [Concomitant]
     Dosage: 1 MG/D
     Route: 048
     Dates: start: 20050322
  4. NAVELBINE [Concomitant]
     Dosage: 40 MG/D
     Route: 042
     Dates: start: 20060828
  5. ZOMETA [Suspect]
     Indication: METASTASES TO BONE
     Dosage: 4 MG, UNK
     Route: 042
     Dates: start: 20060731, end: 20060828
  6. RADIOTHERAPY [Concomitant]
     Indication: METASTASES TO BONE
     Route: 065
     Dates: start: 20050301
  7. CHEMOTHERAPEUTICS,OTHER [Concomitant]
     Indication: METASTASES TO BONE
     Route: 065
     Dates: start: 20050301

REACTIONS (16)
  - BONE DISORDER [None]
  - C-REACTIVE PROTEIN INCREASED [None]
  - COUGH [None]
  - GINGIVAL ABSCESS [None]
  - GINGIVAL DISORDER [None]
  - GINGIVAL PAIN [None]
  - GINGIVAL SWELLING [None]
  - GINGIVITIS [None]
  - INCISIONAL DRAINAGE [None]
  - NASOPHARYNGEAL DISORDER [None]
  - PRIMARY SEQUESTRUM [None]
  - PURULENT DISCHARGE [None]
  - PYREXIA [None]
  - SEQUESTRECTOMY [None]
  - SWELLING [None]
  - TUMOUR ULCERATION [None]
